FAERS Safety Report 16070589 (Version 1)
Quarter: 2019Q2

REPORT INFORMATION
  Report Type: Spontaneous
  Country: US (occurrence: US)
  Receive Date: 20190313
  Receipt Date: 20190313
  Transmission Date: 20190711
  Serious: Yes (Disabling)
  Sender: FDA-Public Use
  Company Number: None

PATIENT
  Age: 72 Year
  Sex: Female
  Weight: 71.55 kg

DRUGS (6)
  1. FLUTICASONE PROPIONATE 250 MCG AND SALMETEROL 50 MCG INHALATION POWDER [Suspect]
     Active Substance: FLUTICASONE FUROATE\SALMETEROL XINAFOATE
     Indication: DYSPNOEA
     Dosage: ?          QUANTITY:1 INHALATION(S);?
     Route: 055
     Dates: start: 20190305, end: 20190312
  2. MULTIVITAMINS [Concomitant]
     Active Substance: VITAMINS
  3. FISH OIL [Concomitant]
     Active Substance: FISH OIL
  4. ALBUTEROL. [Concomitant]
     Active Substance: ALBUTEROL
  5. LEVOTHYROXINE. [Concomitant]
     Active Substance: LEVOTHYROXINE
  6. BISOPROLOL [Concomitant]
     Active Substance: BISOPROLOL

REACTIONS (4)
  - Chest discomfort [None]
  - Product substitution issue [None]
  - Drug ineffective [None]
  - Wheezing [None]

NARRATIVE: CASE EVENT DATE: 20190312
